FAERS Safety Report 6511024-2 (Version None)
Quarter: 2009Q4

REPORT INFORMATION
  Report Type: 
  Country: None (occurrence: None)
  Receive Date: 20091222
  Receipt Date: 20090216
  Transmission Date: 20100525
  Serious: No
  Sender: FDA-Public Use
  Company Number: US-ASTRAZENECA-2009UW04449

PATIENT
  Age: 17502 Day
  Sex: Male

DRUGS (1)
  1. CRESTOR [Suspect]
     Dosage: 1/2 OF 10 MG TABLET
     Route: 048
     Dates: start: 20090201

REACTIONS (2)
  - HEADACHE [None]
  - MUSCLE SPASMS [None]
